FAERS Safety Report 5314510-6 (Version None)
Quarter: 2007Q2

REPORT INFORMATION
  Report Type: 
  Country: None (occurrence: None)
  Receive Date: 20070501
  Receipt Date: 20070501
  Transmission Date: 20071010
  Serious: Yes (Other)
  Sender: FDA-Public Use
  Company Number: None

PATIENT
  Age: 52 Year
  Sex: Female
  Weight: 71.6683 kg

DRUGS (1)
  1. LEVAQUIN [Suspect]
     Indication: BRONCHITIS
     Dosage: 1 TABLET ONCE A DAY PO
     Route: 048
     Dates: start: 20061121, end: 20061127

REACTIONS (7)
  - ARTHRALGIA [None]
  - ASTHENIA [None]
  - BURNING SENSATION [None]
  - HEART RATE INCREASED [None]
  - INSOMNIA [None]
  - NIGHTMARE [None]
  - PAIN IN EXTREMITY [None]
